FAERS Safety Report 20217643 (Version 2)
Quarter: 2022Q1

REPORT INFORMATION
  Report Type: Other
  Country: US (occurrence: None)
  Receive Date: 20211222
  Receipt Date: 20220205
  Transmission Date: 20220423
  Serious: No
  Sender: FDA-Public Use
  Company Number: US-ROCHE-2980695

PATIENT
  Age: 64 Year
  Sex: Female

DRUGS (2)
  1. OCREVUS [Suspect]
     Active Substance: OCRELIZUMAB
     Indication: Multiple sclerosis
     Dosage: DATE OF TREATMENT: 04/JUN/2021, 17/JUL/2018
     Route: 065
     Dates: start: 20171220
  2. OCREVUS [Suspect]
     Active Substance: OCRELIZUMAB
     Route: 065
     Dates: start: 20180108

REACTIONS (1)
  - COVID-19 [Unknown]

NARRATIVE: CASE EVENT DATE: 20211130
